FAERS Safety Report 13389030 (Version 1)
Quarter: 2017Q1

REPORT INFORMATION
  Report Type: Spontaneous
  Country: SE (occurrence: SE)
  Receive Date: 20170330
  Receipt Date: 20170330
  Transmission Date: 20170429
  Serious: Yes (Hospitalization)
  Sender: FDA-Public Use
  Company Number: SE-PFIZER INC-2017128951

PATIENT
  Age: 70 Year
  Sex: Female

DRUGS (13)
  1. NIFEREX [Concomitant]
     Active Substance: IRON\POLYSACCHARIDES
  2. MINDIAB [Suspect]
     Active Substance: GLIPIZIDE
     Indication: DIABETES MELLITUS
     Dosage: 5 MG, DAILY
     Route: 048
     Dates: start: 20110315
  3. OVESTERIN [Concomitant]
     Active Substance: ESTRIOL
  4. SIMVASTATIN ARROW [Concomitant]
     Active Substance: SIMVASTATIN
  5. OMEPRAZOL MYLAN /00661201/ [Concomitant]
     Active Substance: OMEPRAZOLE
  6. FURIX [Concomitant]
     Active Substance: FUROSEMIDE
  7. CITODON [Concomitant]
     Active Substance: ACETAMINOPHEN\CODEINE PHOSPHATE
  8. ENALAPRIL [Concomitant]
     Active Substance: ENALAPRIL
  9. JANUVIA [Suspect]
     Active Substance: SITAGLIPTIN PHOSPHATE
     Indication: DIABETES MELLITUS
     Dosage: 100 MG, DAILY
     Route: 048
     Dates: start: 20140204
  10. EMCONCOR [Concomitant]
     Active Substance: BISOPROLOL FUMARATE
  11. NOVOMIX 30 FLEXPEN [Suspect]
     Active Substance: INSULIN ASPART
     Indication: DIABETES MELLITUS
     Dosage: 76 IU, DAILY
     Route: 058
     Dates: start: 20110315
  12. METFORMIN ACTAVIS [Suspect]
     Active Substance: METFORMIN HYDROCHLORIDE
     Indication: DIABETES MELLITUS
     Dosage: 1000 MG, DAILY
     Route: 048
     Dates: start: 20150202
  13. NITROLINGUAL [Concomitant]
     Active Substance: NITROGLYCERIN

REACTIONS (5)
  - Hypoglycaemia [Unknown]
  - Fatigue [Unknown]
  - Obstructive airways disorder [Unknown]
  - Incorrect dose administered [Unknown]
  - Wheezing [Unknown]

NARRATIVE: CASE EVENT DATE: 20150617
